FAERS Safety Report 6482618-8 (Version None)
Quarter: 2009Q4

REPORT INFORMATION
  Report Type: 
  Country: None (occurrence: None)
  Receive Date: 20091209
  Receipt Date: 20091130
  Transmission Date: 20100525
  Serious: Yes (Other)
  Sender: FDA-Public Use
  Company Number: US-BIOGENIDEC-2009BI015920

PATIENT
  Age: 41 Year
  Sex: Female

DRUGS (2)
  1. TYSABRI [Suspect]
     Indication: MULTIPLE SCLEROSIS
     Route: 042
     Dates: start: 20080128, end: 20090401
  2. TYSABRI [Suspect]
     Route: 042
     Dates: start: 20050101, end: 20050225

REACTIONS (2)
  - DRUG INEFFECTIVE [None]
  - SUPERFICIAL SPREADING MELANOMA STAGE UNSPECIFIED [None]
